FAERS Safety Report 14930215 (Version 2)
Quarter: 2018Q3

REPORT INFORMATION
  Report Type: Spontaneous
  Country: CA (occurrence: CA)
  Receive Date: 20180523
  Receipt Date: 20180723
  Transmission Date: 20181010
  Serious: Yes (Other)
  Sender: FDA-Public Use
  Company Number: PHHY2018CA003004

PATIENT
  Sex: Female

DRUGS (6)
  1. HUMIRA [Suspect]
     Active Substance: ADALIMUMAB
     Indication: PSORIATIC ARTHROPATHY
     Dosage: UNK
     Route: 065
  2. REMICADE [Suspect]
     Active Substance: INFLIXIMAB
     Indication: PRODUCT USED FOR UNKNOWN INDICATION
     Dosage: UNK
     Route: 065
  3. ENBREL [Suspect]
     Active Substance: ETANERCEPT
     Dosage: 50 MG, QW2
     Route: 058
  4. COSENTYX [Suspect]
     Active Substance: SECUKINUMAB
     Indication: PRODUCT USED FOR UNKNOWN INDICATION
     Dosage: UNK
     Route: 065
  5. CIMZIA [Suspect]
     Active Substance: CERTOLIZUMAB PEGOL
     Indication: PRODUCT USED FOR UNKNOWN INDICATION
     Dosage: UNK
     Route: 065
  6. ENBREL [Suspect]
     Active Substance: ETANERCEPT
     Indication: PSORIATIC ARTHROPATHY
     Dosage: 50 MG, UNK
     Route: 058
     Dates: start: 20020215, end: 201703

REACTIONS (10)
  - Joint swelling [Not Recovered/Not Resolved]
  - Impaired work ability [Unknown]
  - Deformity [Not Recovered/Not Resolved]
  - Muscle atrophy [Unknown]
  - Pain [Unknown]
  - Arthritis [Not Recovered/Not Resolved]
  - Bronchitis [Unknown]
  - Drug ineffective [Unknown]
  - Intercepted drug prescribing error [Unknown]
  - Mobility decreased [Recovering/Resolving]
